FAERS Safety Report 10358665 (Version 3)
Quarter: 2014Q4

REPORT INFORMATION
  Report Type: Report from Study
  Country: US (occurrence: US)
  Receive Date: 20140803
  Receipt Date: 20141107
  Transmission Date: 20150528
  Serious: Yes (Hospitalization)
  Sender: FDA-Public Use
  Company Number: US-BRISTOL-MYERS SQUIBB COMPANY-21241708

PATIENT
  Age: 51 Year
  Sex: Male
  Weight: 98 kg

DRUGS (17)
  1. SENNA [Concomitant]
     Active Substance: SENNA LEAF\SENNOSIDES\SENNOSIDES A AND B
  2. EMLA [Concomitant]
     Active Substance: LIDOCAINE\PRILOCAINE
  3. METOPROLOL [Concomitant]
     Active Substance: METOPROLOL
  4. PREDNISONE. [Concomitant]
     Active Substance: PREDNISONE
  5. PANTOPRAZOLE [Concomitant]
     Active Substance: PANTOPRAZOLE SODIUM
  6. TESTOSTERONE CIPIONATE [Concomitant]
     Active Substance: TESTOSTERONE
  7. LEVOTHYROXINE [Concomitant]
     Active Substance: LEVOTHYROXINE
  8. LOVENOX [Concomitant]
     Active Substance: ENOXAPARIN SODIUM
  9. SODIUM CHLORIDE. [Concomitant]
     Active Substance: SODIUM CHLORIDE
  10. ASPIRIN. [Concomitant]
     Active Substance: ASPIRIN
  11. ATIVAN [Concomitant]
     Active Substance: LORAZEPAM
  12. NIVOLUMAB [Suspect]
     Active Substance: NIVOLUMAB
     Indication: NEOPLASM
     Dosage: INTERRUPTED ON: 23-JUN-2014
     Route: 042
     Dates: start: 20140403
  13. IPILIMUMAB [Suspect]
     Active Substance: IPILIMUMAB
     Indication: NEOPLASM
     Dosage: INTERRUPTED ON: 23-JUN-2014
     Route: 042
     Dates: start: 20140403
  14. MIRALAX [Concomitant]
     Active Substance: POLYETHYLENE GLYCOL 3350
  15. COMPAZINE [Concomitant]
     Active Substance: PROCHLORPERAZINE MALEATE
  16. CETACAINE ANESTHETIC [Concomitant]
     Active Substance: BENZOCAINE\BUTAMBEN\TETRACAINE HYDROCHLORIDE
  17. ZOLPIDEM [Concomitant]
     Active Substance: ZOLPIDEM\ZOLPIDEM TARTRATE

REACTIONS (1)
  - Hyponatraemia [Recovered/Resolved with Sequelae]

NARRATIVE: CASE EVENT DATE: 20140722
